FAERS Safety Report 16543787 (Version 1)
Quarter: 2020Q3

REPORT INFORMATION
  Report Type: Spontaneous
  Country: PT (occurrence: PT)
  Receive Date: 20190709
  Receipt Date: 20190709
  Transmission Date: 20201104
  Serious: Yes (Other)
  Sender: FDA-Public Use
  Company Number: PT-ROCHE-2350186

PATIENT
  Age: 58 Year
  Sex: Male

DRUGS (1)
  1. ALECTINIB. [Suspect]
     Active Substance: ALECTINIB
     Indication: LUNG ADENOCARCINOMA
     Route: 065
     Dates: start: 201705, end: 201808

REACTIONS (2)
  - Disease progression [Unknown]
  - Myalgia [Unknown]

NARRATIVE: CASE EVENT DATE: 201808
